FAERS Safety Report 24610008 (Version 1)
Quarter: 2024Q4

REPORT INFORMATION
  Report Type: Spontaneous
  Country: GB (occurrence: GB)
  Receive Date: 20241112
  Receipt Date: 20241112
  Transmission Date: 20250115
  Serious: Yes (Other)
  Sender: SK LIFE SCIENCE
  Company Number: GB-ACRAF SpA-2024-036222

PATIENT

DRUGS (4)
  1. XCOPRI [Suspect]
     Active Substance: CENOBAMATE
     Indication: Partial seizures
     Dosage: 300 MG (300 MG,1 IN 1 D)
     Route: 065
     Dates: start: 20240701
  2. XCOPRI [Suspect]
     Active Substance: CENOBAMATE
     Dosage: 325 MILLIGRAM
     Route: 065
  3. XCOPRI [Suspect]
     Active Substance: CENOBAMATE
     Dosage: 350 MILLIGRAM
     Route: 065
  4. VALPROATE SODIUM [Concomitant]
     Active Substance: VALPROATE SODIUM
     Indication: Product used for unknown indication
     Dosage: 1000 MG (500 MG,2 IN 1D)
     Route: 065

REACTIONS (4)
  - Seizure [Unknown]
  - Off label use [Unknown]
  - Somnolence [Unknown]
  - Malaise [Unknown]
